FAERS Safety Report 25895112 (Version 1)
Quarter: 2025Q4

REPORT INFORMATION
  Report Type: Spontaneous
  Country: EU (occurrence: EU)
  Receive Date: 20251008
  Receipt Date: 20251008
  Transmission Date: 20260117
  Serious: Yes (Other)
  Sender: MACLEODS
  Company Number: EU-MACLEODS PHARMA-MAC2025055649

PATIENT

DRUGS (1)
  1. ESCITALOPRAM [Suspect]
     Active Substance: ESCITALOPRAM OXALATE
     Indication: Adjustment disorder with depressed mood
     Route: 065

REACTIONS (4)
  - Dermatitis exfoliative generalised [Recovered/Resolved]
  - Epidermal necrosis [Recovered/Resolved]
  - Photosensitivity reaction [Recovered/Resolved]
  - Lymphocytic infiltration [Recovered/Resolved]
